FAERS Safety Report 25843918 (Version 2)
Quarter: 2025Q4

REPORT INFORMATION
  Report Type: Spontaneous
  Country: BR (occurrence: BR)
  Receive Date: 20250925
  Receipt Date: 20251001
  Transmission Date: 20260118
  Serious: Yes (Other)
  Sender: GENMAB
  Company Number: BR-ABBVIE-6471967

PATIENT
  Age: 56 Year
  Sex: Female

DRUGS (1)
  1. EPCORITAMAB [Suspect]
     Active Substance: EPCORITAMAB
     Indication: Diffuse large B-cell lymphoma
     Dosage: UNK (THIRD LINE)
     Route: 058

REACTIONS (4)
  - Diffuse large B-cell lymphoma [Unknown]
  - Leukaemia [Unknown]
  - Mass [Unknown]
  - Off label use [Unknown]
